FAERS Safety Report 7895421-9 (Version None)
Quarter: 2011Q4

REPORT INFORMATION
  Report Type: 
  Country: None (occurrence: None)
  Receive Date: 20111106
  Receipt Date: 20110826
  Transmission Date: 20120403
  Serious: No
  Sender: FDA-Public Use
  Company Number: US-AMGEN-USASP2011042219

PATIENT
  Age: 56 Year
  Sex: Female
  Weight: 74.376 kg

DRUGS (3)
  1. AMBIEN [Concomitant]
     Dosage: 5 MG, UNK
     Route: 048
  2. ENBREL [Suspect]
     Indication: RHEUMATOID ARTHRITIS
     Dosage: 50 MG, QWK
     Route: 058
     Dates: start: 20000223
  3. VITAMIN D [Concomitant]
     Dosage: 1000 UNIT

REACTIONS (1)
  - FUNGAL SKIN INFECTION [None]
